FAERS Safety Report 23146757 (Version 3)
Quarter: 2023Q4

REPORT INFORMATION
  Report Type: Spontaneous
  Country: JP (occurrence: JP)
  Receive Date: 20231105
  Receipt Date: 20231225
  Transmission Date: 20240110
  Serious: Yes (Other)
  Sender: FDA-Public Use
  Company Number: JP-002147023-NVSJ2023JP015649

PATIENT
  Age: 37 Year
  Sex: Female

DRUGS (1)
  1. SCEMBLIX [Suspect]
     Active Substance: ASCIMINIB HYDROCHLORIDE
     Indication: Chronic myeloid leukaemia
     Dosage: 80 MG, STARTED AFTER MAR 2023
     Route: 048
     Dates: start: 2023

REACTIONS (1)
  - Bradycardia [Recovering/Resolving]
